FAERS Safety Report 17103035 (Version 1)
Quarter: 2019Q4

REPORT INFORMATION
  Report Type: Report from Study
  Country: US (occurrence: US)
  Receive Date: 20191203
  Receipt Date: 20191203
  Transmission Date: 20200122
  Serious: No
  Sender: FDA-Public Use
  Company Number: NVSC2019US055356

PATIENT
  Age: 31 Year
  Sex: Female
  Weight: 74.83 kg

DRUGS (2)
  1. ENTRESTO [Suspect]
     Active Substance: SACUBITRIL\VALSARTAN
     Indication: CARDIAC FAILURE CHRONIC
     Dosage: 100 MG, BID
     Route: 048
     Dates: start: 201908
  2. ENTRESTO [Suspect]
     Active Substance: SACUBITRIL\VALSARTAN
     Dosage: 0.5 DF
     Route: 065

REACTIONS (5)
  - Wrong technique in product usage process [Unknown]
  - Abdominal discomfort [Unknown]
  - Product prescribing error [Unknown]
  - Dyspepsia [Unknown]
  - Nasopharyngitis [Recovering/Resolving]

NARRATIVE: CASE EVENT DATE: 20191116
